FAERS Safety Report 24731323 (Version 1)
Quarter: 2024Q4

REPORT INFORMATION
  Report Type: Other
  Country: CA (occurrence: CA)
  Receive Date: 20241213
  Receipt Date: 20241213
  Transmission Date: 20250115
  Serious: Yes (Life-Threatening, Hospitalization, Other)
  Sender: PFIZER
  Company Number: CA-PFIZER INC-202400322370

PATIENT

DRUGS (6)
  1. ADALIMUMAB [Suspect]
     Active Substance: ADALIMUMAB
     Dosage: UNK
     Route: 064
  2. ADALIMUMAB [Suspect]
     Active Substance: ADALIMUMAB
     Dosage: UNK
     Route: 063
  3. INFLIXIMAB [Suspect]
     Active Substance: INFLIXIMAB
     Dosage: UNK
     Route: 064
  4. INFLIXIMAB [Suspect]
     Active Substance: INFLIXIMAB
     Dosage: UNK
     Route: 063
  5. ROTARIX [Concomitant]
     Active Substance: HUMAN ROTAVIRUS A TYPE G1P(8) STRAIN RIX4414 LIVE ANTIGEN
     Indication: Rotavirus immunisation
     Dosage: UNK
     Route: 065
  6. ROTAVIRUS VACCINE LIVE REASSORT ORAL 5V [Concomitant]
     Indication: Rotavirus immunisation
     Dosage: UNK
     Route: 065

REACTIONS (22)
  - Maternal exposure during pregnancy [Unknown]
  - Exposure via breast milk [Unknown]
  - Adenovirus infection [Unknown]
  - Aorta hypoplasia [Unknown]
  - Atrial septal defect [Unknown]
  - Bronchiolitis [Unknown]
  - Colitis [Unknown]
  - Enterococcus test positive [Unknown]
  - Eosinophilia [Unknown]
  - Foetal heart rate abnormal [Unknown]
  - Hyperbilirubinaemia [Unknown]
  - Hypogammaglobulinaemia [Unknown]
  - Infection [Unknown]
  - Jaundice neonatal [Unknown]
  - Low birth weight baby [Unknown]
  - Neonatal respiratory distress syndrome [Unknown]
  - Neutropenia [Unknown]
  - Norovirus infection [Unknown]
  - Premature baby [Unknown]
  - Thrombocytosis [Unknown]
  - Transient tachypnoea of the newborn [Unknown]
  - Ventricular septal defect [Unknown]
